FAERS Safety Report 18575288 (Version 6)
Quarter: 2022Q2

REPORT INFORMATION
  Report Type: Spontaneous
  Country: US (occurrence: US)
  Receive Date: 20201203
  Receipt Date: 20220513
  Transmission Date: 20220721
  Serious: Yes (Other)
  Sender: FDA-Public Use
  Company Number: US-PFIZER INC-2020473659

PATIENT
  Age: 67 Year
  Sex: Female

DRUGS (1)
  1. XELJANZ [Suspect]
     Active Substance: TOFACITINIB CITRATE
     Dosage: 5 MG, 2X/DAY (1 IN THE AM AND 1 AT SUPPER TIME)

REACTIONS (5)
  - Depression [Unknown]
  - Nasopharyngitis [Unknown]
  - Cough [Unknown]
  - Visual impairment [Unknown]
  - Mental disorder [Unknown]
